FAERS Safety Report 7938418-2 (Version None)
Quarter: 2011Q4

REPORT INFORMATION
  Report Type: 
  Country: None (occurrence: None)
  Receive Date: 20111123
  Receipt Date: 20111109
  Transmission Date: 20120403
  Serious: Yes (Hospitalization)
  Sender: FDA-Public Use
  Company Number: US-WATSON-2011-19006

PATIENT
  Sex: Female

DRUGS (2)
  1. FENTANYL-75 [Suspect]
     Indication: PAIN
     Dosage: 1 PATCH EVERY 72 HRS
     Route: 062
     Dates: end: 20110801
  2. FENTANYL-50 [Suspect]
     Indication: PAIN
     Dosage: 1 PATCH EVERY 72 HRS
     Route: 062
     Dates: start: 20110801, end: 20111001

REACTIONS (2)
  - RENAL FAILURE [None]
  - DRUG INEFFECTIVE [None]
